FAERS Safety Report 25531953 (Version 1)
Quarter: 2025Q3

REPORT INFORMATION
  Report Type: Spontaneous
  Country: US (occurrence: US)
  Receive Date: 20250709
  Receipt Date: 20250709
  Transmission Date: 20251021
  Serious: No
  Sender: HIKMA
  Company Number: US-HIKMA PHARMACEUTICALS USA INC.-US-H14001-25-04074

PATIENT
  Sex: Female

DRUGS (1)
  1. LIRAGLUTIDE [Suspect]
     Active Substance: LIRAGLUTIDE
     Indication: Insulin resistance
     Dosage: 1.8 MILLIGRAM, QD
     Route: 065

REACTIONS (3)
  - Dyscalculia [Unknown]
  - Product dose omission issue [Unknown]
  - Off label use [Unknown]
